FAERS Safety Report 10456646 (Version 3)
Quarter: 2014Q3

REPORT INFORMATION
  Report Type: Report from Study
  Country: IN (occurrence: IN)
  Receive Date: 20140916
  Receipt Date: 20140926
  Transmission Date: 20150326
  Serious: Yes (Death, Life-Threatening, Hospitalization, Other)
  Sender: FDA-Public Use
  Company Number: IN-PFIZER INC-2012329142

PATIENT
  Age: 52 Year
  Sex: Male
  Weight: 60 kg

DRUGS (2)
  1. CRIZOTINIB [Suspect]
     Active Substance: CRIZOTINIB
     Indication: NON-SMALL CELL LUNG CANCER
     Dosage: 250 MG, UNK
     Route: 048
     Dates: start: 20121217
  2. CRIZOTINIB [Suspect]
     Active Substance: CRIZOTINIB
     Dosage: 250 MG, 2X/DAY
     Route: 048
     Dates: start: 20130607, end: 20131010

REACTIONS (20)
  - Abasia [Recovered/Resolved with Sequelae]
  - Urinary tract infection [Unknown]
  - Non-small cell lung cancer [Fatal]
  - Hypotension [Recovered/Resolved]
  - Ecchymosis [Recovered/Resolved]
  - Nausea [Unknown]
  - Bradycardia [Fatal]
  - Tachypnoea [Recovered/Resolved with Sequelae]
  - Vomiting [Recovered/Resolved with Sequelae]
  - Asthenia [Recovered/Resolved with Sequelae]
  - Constipation [Unknown]
  - Vomiting [Recovered/Resolved]
  - Disease progression [Fatal]
  - Tachycardia [Recovered/Resolved with Sequelae]
  - Hypocalcaemia [Recovered/Resolved with Sequelae]
  - Vision blurred [Not Recovered/Not Resolved]
  - Cardiac arrest [Fatal]
  - Speech disorder [Recovered/Resolved with Sequelae]
  - Convulsion [Recovered/Resolved]
  - Muscular weakness [Recovered/Resolved with Sequelae]

NARRATIVE: CASE EVENT DATE: 20121226
